FAERS Safety Report 14224520 (Version 1)
Quarter: 2017Q4

REPORT INFORMATION
  Report Type: Report from Study
  Country: GB (occurrence: GB)
  Receive Date: 20171127
  Receipt Date: 20171127
  Transmission Date: 20180321
  Serious: Yes (Hospitalization, Other)
  Sender: FDA-Public Use
  Company Number: GB-ROCHE-1963354

PATIENT
  Age: 61 Year
  Sex: Male

DRUGS (6)
  1. ALLOPURINOL. [Concomitant]
     Active Substance: ALLOPURINOL
     Route: 065
  2. ACYCLOVIR. [Concomitant]
     Active Substance: ACYCLOVIR
     Indication: INFECTION PROPHYLAXIS
     Route: 065
  3. MITOXANTRONE [Suspect]
     Active Substance: MITOXANTRONE HYDROCHLORIDE
     Indication: CHRONIC LYMPHOCYTIC LEUKAEMIA
     Dosage: DAY 1?ON 10/AUG/2011, HE RECEIVED THE MOST RECENT DOSE OF MITOXANTRONE (12 MG IV ONCE) BEFORE VASOVA
     Route: 042
     Dates: start: 20110810
  4. RITUXIMAB. [Suspect]
     Active Substance: RITUXIMAB
     Indication: CHRONIC LYMPHOCYTIC LEUKAEMIA
     Dosage: DAY 1?ON 10/AUG/2011, HE RECEIVED THE MOST RECENT DOSE OF RITUXIMAB (100 MG IV ONCE) BEFORE VASOVAGA
     Route: 042
     Dates: start: 20110810
  5. FLUDARABINE [Suspect]
     Active Substance: FLUDARABINE PHOSPHATE
     Indication: CHRONIC LYMPHOCYTIC LEUKAEMIA
     Dosage: FOR 5 DAYS ; DAYS 1-5?ON 10/AUG/2011, HE RECEIVED THE MOST RECENT DOSE OF FLUDARABINE (DOSE, ROUTE,
     Route: 048
  6. CYCLOPHOSPHAMIDE. [Suspect]
     Active Substance: CYCLOPHOSPHAMIDE
     Indication: CHRONIC LYMPHOCYTIC LEUKAEMIA
     Dosage: FOR 5 DAYS; DAYS 1-5?ON 10/AUG/2011, HE RECEIVED THE MOST RECENT DOSE OF CYCLOPHOSPHAMIDE (DOSE, ROU
     Route: 048

REACTIONS (2)
  - Neutropenia [Recovered/Resolved]
  - Presyncope [Recovered/Resolved]

NARRATIVE: CASE EVENT DATE: 20110810
